FAERS Safety Report 11785883 (Version 1)
Quarter: 2015Q4

REPORT INFORMATION
  Report Type: Spontaneous
  Country: GB (occurrence: GB)
  Receive Date: 20151130
  Receipt Date: 20151130
  Transmission Date: 20160305
  Serious: Yes (Hospitalization)
  Sender: FDA-Public Use
  Company Number: GB-HLSUS-2015-UK-000004

PATIENT
  Age: 23 Year
  Sex: Female

DRUGS (5)
  1. SULPIRIDE [Concomitant]
     Active Substance: SULPIRIDE
  2. CITALOPRAM [Concomitant]
     Active Substance: CITALOPRAM HYDROBROMIDE
  3. CLOZARIL [Suspect]
     Active Substance: CLOZAPINE
     Indication: SCHIZOPHRENIA
     Route: 048
     Dates: start: 20060418
  4. CLOZARIL [Suspect]
     Active Substance: CLOZAPINE
     Indication: SCHIZOPHRENIA
     Dosage: ONCE DAILY
     Route: 048
     Dates: start: 20150930, end: 20151012
  5. CLOZARIL [Suspect]
     Active Substance: CLOZAPINE
     Indication: SCHIZOPHRENIA
     Dosage: ONCE DAILY
     Route: 048
     Dates: start: 20151012

REACTIONS (2)
  - Mental impairment [Recovered/Resolved]
  - Antipsychotic drug level above therapeutic [Not Recovered/Not Resolved]

NARRATIVE: CASE EVENT DATE: 20150921
